FAERS Safety Report 7906060-5 (Version None)
Quarter: 2011Q4

REPORT INFORMATION
  Report Type: 
  Country: None (occurrence: None)
  Receive Date: 20111110
  Receipt Date: 20111110
  Transmission Date: 20120403
  Serious: Yes (Death)
  Sender: FDA-Public Use
  Company Number: None

PATIENT
  Age: 58 Year
  Sex: Male
  Weight: 68.038 kg

DRUGS (3)
  1. INCIVEK [Suspect]
     Indication: HEPATITIS C
     Dosage: 375 MG
     Route: 048
     Dates: start: 20111011, end: 20111030
  2. RIBAVIRIN [Concomitant]
  3. PEGASYS [Concomitant]

REACTIONS (6)
  - SEPSIS [None]
  - RENAL FAILURE ACUTE [None]
  - CONDITION AGGRAVATED [None]
  - ACUTE RESPIRATORY DISTRESS SYNDROME [None]
  - HEPATITIS C [None]
  - MULTI-ORGAN DISORDER [None]
